FAERS Safety Report 5527813-7 (Version None)
Quarter: 2007Q4

REPORT INFORMATION
  Report Type: 
  Country: None (occurrence: None)
  Receive Date: 20071128
  Receipt Date: 20070914
  Transmission Date: 20080405
  Serious: Yes (Other)
  Sender: FDA-Public Use
  Company Number: B0487082A

PATIENT
  Age: 34 Year
  Sex: Female

DRUGS (1)
  1. VALTREX [Suspect]
     Indication: MENINGITIS
     Dosage: 500MG THREE TIMES PER DAY
     Route: 048
     Dates: start: 20070901

REACTIONS (2)
  - BLOOD CREATININE INCREASED [None]
  - URINE OUTPUT DECREASED [None]
